FAERS Safety Report 5814753-9 (Version None)
Quarter: 2008Q3

REPORT INFORMATION
  Report Type: 
  Country: None (occurrence: None)
  Receive Date: 20080718
  Receipt Date: 20080709
  Transmission Date: 20090109
  Serious: Yes (Hospitalization)
  Sender: FDA-Public Use
  Company Number: US-ROCHE-575032

PATIENT
  Age: 79 Year
  Sex: Male

DRUGS (2)
  1. TAMIFLU [Suspect]
     Route: 065
     Dates: start: 20080201, end: 20080201
  2. COUGH SYRUP WITH CODEINE NOS [Concomitant]
     Dosage: DRUG REPORTED AS: COUGH SYRUP WITH CODEINE.

REACTIONS (5)
  - CLOSTRIDIAL INFECTION [None]
  - CONFUSIONAL STATE [None]
  - DISORIENTATION [None]
  - HALLUCINATION [None]
  - STAPHYLOCOCCAL INFECTION [None]
